FAERS Safety Report 4685102-7 (Version None)
Quarter: 2005Q2

REPORT INFORMATION
  Report Type: 
  Country: None (occurrence: None)
  Receive Date: 20050531
  Receipt Date: 20050302
  Transmission Date: 20051028
  Serious: No
  Sender: FDA-Public Use
  Company Number: FABR-10967

PATIENT
  Age: 32 Year
  Sex: Male

DRUGS (7)
  1. FABRAZYME [Suspect]
     Indication: FABRY'S DISEASE
     Dosage: 67 MG Q2WKS IV
     Route: 042
     Dates: start: 20030801
  2. BENADRYL [Concomitant]
  3. DEXAMETHASONE [Concomitant]
  4. TYLENOL (CAPLET) [Concomitant]
  5. COMPAZINE [Concomitant]
  6. KYTRIL [Concomitant]
  7. SOLU-MEDROL [Concomitant]

REACTIONS (2)
  - CHILLS [None]
  - HYPERTENSION [None]
